FAERS Safety Report 10210602 (Version 1)
Quarter: 2014Q2

REPORT INFORMATION
  Report Type: Spontaneous
  Country: US (occurrence: None)
  Receive Date: 20140529
  Receipt Date: 20140529
  Transmission Date: 20141212
  Serious: Yes (Hospitalization)
  Sender: FDA-Public Use
  Company Number: None

PATIENT
  Age: 58 Year
  Sex: Male
  Weight: 149.5 kg

DRUGS (2)
  1. ACETAMINOPHEN/OXYCODONE [Suspect]
     Indication: PAIN
     Dosage: 5/325 MG PRN PO
     Route: 048
     Dates: start: 20100623, end: 20140412
  2. LORAZEPAM [Suspect]
     Indication: ANXIETY
     Route: 048
     Dates: start: 20130220, end: 20140412

REACTIONS (5)
  - Respiratory failure [None]
  - Lethargy [None]
  - Confusional state [None]
  - Gait disturbance [None]
  - Mental status changes [None]
